FAERS Safety Report 8295245-7 (Version None)
Quarter: 2012Q2

REPORT INFORMATION
  Report Type: 
  Country: None (occurrence: None)
  Receive Date: 20120416
  Receipt Date: 20120410
  Transmission Date: 20120825
  Serious: Yes (Hospitalization)
  Sender: FDA-Public Use
  Company Number: 2011SP031788

PATIENT
  Age: 30 Year
  Sex: Female
  Weight: 137.8935 kg

DRUGS (7)
  1. COUMADIN [Suspect]
     Indication: ANTICOAGULANT THERAPY
     Dates: start: 20091201, end: 20100301
  2. HYDROCHLOROTHIAZIDE [Concomitant]
  3. NUVARING [Suspect]
  4. MULTI-VITAMIN [Concomitant]
  5. NUVARING [Suspect]
     Indication: CONTRACEPTION
     Dates: start: 20090601, end: 20091211
  6. VITAMIN B COMPLEX CAP [Concomitant]
  7. HOODIA (HOODIA GORDONII) [Concomitant]

REACTIONS (11)
  - INTERNATIONAL NORMALISED RATIO DECREASED [None]
  - URINARY TRACT INFECTION [None]
  - DEPRESSION [None]
  - BRONCHITIS [None]
  - HYPERTENSION [None]
  - FOOT FRACTURE [None]
  - HYPERCOAGULATION [None]
  - BINGE EATING [None]
  - MITRAL VALVE PROLAPSE [None]
  - PULMONARY EMBOLISM [None]
  - DIABETES MELLITUS [None]
